FAERS Safety Report 8375661-5 (Version None)
Quarter: 2012Q1

REPORT INFORMATION
  Report Type: 
  Country: None (occurrence: None)
  Receive Date: 20120323
  Receipt Date: 20110421
  Transmission Date: 20120608
  Serious: Yes (Hospitalization)
  Sender: FDA-Public Use
  Company Number: 163-21880-11020161

PATIENT
  Age: 62 Year
  Sex: Female
  Weight: 61.6892 kg

DRUGS (9)
  1. NEURONTIN [Concomitant]
  2. REYETAZ/ATAZANAVIR (ATAZANAVIR) [Concomitant]
  3. FERROUS SULFATE TAB [Concomitant]
  4. REVLIMID [Suspect]
     Indication: MULTIPLE MYELOMA
     Dosage: 25 MG, QD FOR 3 WEEKS ON AND 1 WEEK OFF, PO
     Route: 048
     Dates: start: 20100801
  5. DECADRON [Concomitant]
  6. EPZICOM/ZIAGEN/3TC (ABACAVIR SULFATE W/LAMIVUDINE) [Concomitant]
  7. PRAVASTATIN [Concomitant]
  8. NORVIR [Concomitant]
  9. BACTRIM [Concomitant]

REACTIONS (3)
  - DYSPNOEA [None]
  - FATIGUE [None]
  - RASH [None]
